FAERS Safety Report 7137098-6 (Version None)
Quarter: 2010Q4

REPORT INFORMATION
  Report Type: 
  Country: None (occurrence: None)
  Receive Date: 20101119
  Receipt Date: 20100713
  Transmission Date: 20110411
  Serious: Yes (Death)
  Sender: FDA-Public Use
  Company Number: DSA_44224_2010

PATIENT
  Sex: Female

DRUGS (4)
  1. XENAZINE [Suspect]
     Indication: HUNTINGTON'S DISEASE
     Dosage: (25 MG BID OR TID ORAL)
     Route: 048
     Dates: start: 20091217
  2. VITRUM [Concomitant]
  3. SINGULAIR [Concomitant]
  4. SYNTHROID [Concomitant]

REACTIONS (1)
  - DEATH [None]
